FAERS Safety Report 10865351 (Version 1)
Quarter: 2015Q1

REPORT INFORMATION
  Report Type: Report from Study
  Country: US (occurrence: US)
  Receive Date: 20150224
  Receipt Date: 20150224
  Transmission Date: 20150721
  Serious: No
  Sender: FDA-Public Use
  Company Number: US-MYLANLABS-2014S1010966

PATIENT
  Age: 17 Year
  Sex: Male

DRUGS (5)
  1. AMNESTEEM [Suspect]
     Active Substance: ISOTRETINOIN
     Indication: ACNE
     Dosage: 40 MG,QD
     Route: 048
     Dates: start: 201401, end: 201405
  2. CLARAVIS [Suspect]
     Active Substance: ISOTRETINOIN
     Dosage: 30 MG,QD
     Route: 048
     Dates: start: 201310, end: 201311
  3. CLARAVIS [Suspect]
     Active Substance: ISOTRETINOIN
     Indication: ACNE
  4. CLARAVIS [Suspect]
     Active Substance: ISOTRETINOIN
     Dosage: 30 MG,BID
     Route: 048
     Dates: start: 201311, end: 201401
  5. ADDERALL [Concomitant]
     Active Substance: AMPHETAMINE ASPARTATE\AMPHETAMINE SULFATE\DEXTROAMPHETAMINE SACCHARATE\DEXTROAMPHETAMINE SULFATE
     Dosage: UNK

REACTIONS (1)
  - Depression [Recovered/Resolved]

NARRATIVE: CASE EVENT DATE: 20140417
